FAERS Safety Report 11316034 (Version 1)
Quarter: 2015Q3

REPORT INFORMATION
  Report Type: Spontaneous
  Country: US (occurrence: None)
  Receive Date: 20150727
  Receipt Date: 20150727
  Transmission Date: 20151125
  Serious: No
  Sender: FDA-Public Use
  Company Number: None

PATIENT
  Age: 47 Year
  Sex: Male

DRUGS (2)
  1. LISINOPRIL AND HYDROCHLOROT [Concomitant]
  2. HARVONI [Suspect]
     Active Substance: LEDIPASVIR\SOFOSBUVIR
     Indication: HEPATITIS A
     Dosage: HARVONI 90-400 MG DAILY PO
     Route: 048

REACTIONS (3)
  - Headache [None]
  - Dyspepsia [None]
  - Fatigue [None]
